FAERS Safety Report 7571886-7 (Version None)
Quarter: 2011Q2

REPORT INFORMATION
  Report Type: 
  Country: None (occurrence: None)
  Receive Date: 20110624
  Receipt Date: 20100629
  Transmission Date: 20111010
  Serious: No
  Sender: FDA-Public Use
  Company Number: A0867652A

PATIENT
  Age: 81 Year
  Sex: Female

DRUGS (4)
  1. VERAMYST [Suspect]
     Indication: ALLERGIC SINUSITIS
     Dosage: 2SPR PER DAY
     Route: 045
     Dates: start: 20100401
  2. ADVAIR DISKUS 100/50 [Concomitant]
  3. ALLEGRA [Concomitant]
  4. CARDIZEM [Concomitant]

REACTIONS (1)
  - ALOPECIA [None]
